FAERS Safety Report 21067407 (Version 1)
Quarter: 2022Q3

REPORT INFORMATION
  Report Type: Spontaneous
  Country: US (occurrence: None)
  Receive Date: 20220712
  Receipt Date: 20220712
  Transmission Date: 20221027
  Serious: No
  Sender: FDA-Public Use
  Company Number: 2022A229747

PATIENT
  Sex: Female
  Weight: 108.9 kg

DRUGS (2)
  1. BYDUREON BCISE [Suspect]
     Active Substance: EXENATIDE
     Indication: Insulin resistance
     Route: 058
     Dates: start: 2018
  2. OZEMPIC [Concomitant]
     Active Substance: SEMAGLUTIDE
     Route: 065

REACTIONS (6)
  - Syncope [Unknown]
  - Glycosylated haemoglobin abnormal [Unknown]
  - Weight decreased [Unknown]
  - Device leakage [Unknown]
  - Inability to afford medication [Unknown]
  - Product dose omission issue [Unknown]
